FAERS Safety Report 8411306-3 (Version None)
Quarter: 2012Q2

REPORT INFORMATION
  Report Type: 
  Country: None (occurrence: None)
  Receive Date: 20120605
  Receipt Date: 20120530
  Transmission Date: 20120825
  Serious: Yes (Other)
  Sender: FDA-Public Use
  Company Number: US-PFIZER INC-2012130610

PATIENT
  Sex: Female
  Weight: 72.562 kg

DRUGS (2)
  1. PREMARIN [Suspect]
     Dosage: UNK
     Route: 048
     Dates: end: 20120301
  2. PREMARIN [Suspect]
     Indication: HORMONE REPLACEMENT THERAPY
     Dosage: 0.625 MG, 1X/DAY
     Route: 048

REACTIONS (4)
  - HOT FLUSH [None]
  - THYROID DISORDER [None]
  - HYPERHIDROSIS [None]
  - HYPERTENSION [None]
